FAERS Safety Report 6099369-4 (Version None)
Quarter: 2009Q1

REPORT INFORMATION
  Report Type: 
  Country: None (occurrence: None)
  Receive Date: 20090303
  Receipt Date: 20090219
  Transmission Date: 20090719
  Serious: Yes (Hospitalization, Other)
  Sender: FDA-Public Use
  Company Number: US-PFIZER INC-2009173748

PATIENT
  Sex: Female
  Weight: 58.957 kg

DRUGS (6)
  1. TIKOSYN [Suspect]
     Indication: ATRIAL FIBRILLATION
     Dates: start: 20030401
  2. TIKOSYN [Suspect]
     Indication: ATRIAL TACHYCARDIA
  3. PREMARIN [Concomitant]
     Dosage: UNK
  4. THYROLAR [Concomitant]
     Dosage: UNK
  5. OSCAL [Concomitant]
     Dosage: UNK
  6. CLONIDINE [Concomitant]

REACTIONS (7)
  - BLOOD ELECTROLYTES DECREASED [None]
  - JAW DISORDER [None]
  - LOSS OF CONSCIOUSNESS [None]
  - PULMONARY HYPERTENSION [None]
  - SLEEP APNOEA SYNDROME [None]
  - TACHYCARDIA [None]
  - TORSADE DE POINTES [None]
